FAERS Safety Report 5441340-7 (Version None)
Quarter: 2007Q3

REPORT INFORMATION
  Report Type: 
  Country: None (occurrence: None)
  Receive Date: 20070903
  Receipt Date: 20070829
  Transmission Date: 20080115
  Serious: Yes (Other)
  Sender: FDA-Public Use
  Company Number: PHFR2007GB02556

PATIENT
  Sex: Female

DRUGS (2)
  1. IMIPRAMINE [Suspect]
     Route: 065
  2. NEURONTIN [Suspect]
     Indication: NEURALGIA
     Dosage: 600 MG, TID
     Route: 048

REACTIONS (1)
  - FALL [None]
